FAERS Safety Report 23347618 (Version 1)
Quarter: 2023Q4

REPORT INFORMATION
  Report Type: Spontaneous
  Country: US (occurrence: None)
  Receive Date: 20231228
  Receipt Date: 20231228
  Transmission Date: 20240110
  Serious: Yes (Other)
  Sender: FDA-Public Use
  Company Number: None

PATIENT
  Age: 35 Year
  Sex: Male
  Weight: 76.95 kg

DRUGS (1)
  1. MAVYRET [Suspect]
     Active Substance: GLECAPREVIR\PIBRENTASVIR
     Indication: Chronic hepatitis C
     Dosage: 3 DF DOSAGE FORM DAILY ORAL?
     Route: 048
     Dates: start: 20231218, end: 20231226

REACTIONS (12)
  - Headache [None]
  - Stomatitis [None]
  - Blister [None]
  - Odynophagia [None]
  - Rash [None]
  - Mucosal inflammation [None]
  - Emotional distress [None]
  - Oral pain [None]
  - Rash erythematous [None]
  - Oral mucosal erythema [None]
  - Oral mucosal blistering [None]
  - Oropharyngeal swelling [None]

NARRATIVE: CASE EVENT DATE: 20231220
